FAERS Safety Report 6859618-9 (Version None)
Quarter: 2010Q3

REPORT INFORMATION
  Report Type: 
  Country: None (occurrence: None)
  Receive Date: 20100719
  Receipt Date: 20080517
  Transmission Date: 20110219
  Serious: Yes (Other)
  Sender: FDA-Public Use
  Company Number: US-PFIZER INC-2008020990

PATIENT
  Sex: Male
  Weight: 100 kg

DRUGS (37)
  1. CHANTIX [Suspect]
     Indication: SMOKING CESSATION THERAPY
     Dates: start: 20070910, end: 20080228
  2. CARVEDILOL [Concomitant]
  3. LISINOPRIL [Concomitant]
  4. DILTIA XT [Concomitant]
  5. DILTIA XT [Concomitant]
  6. HYDROCHLOROTHIAZIDE [Concomitant]
  7. HYDROCHLOROTHIAZIDE [Concomitant]
  8. METFORMIN HCL [Concomitant]
  9. METFORMIN HCL [Concomitant]
  10. THEOPHYLLINE [Concomitant]
  11. THEOPHYLLINE [Concomitant]
  12. POTASSIUM CHLORIDE [Concomitant]
  13. POTASSIUM CHLORIDE [Concomitant]
  14. ALBUTEROL SULFATE [Concomitant]
     Route: 048
  15. ALBUTEROL SULFATE [Concomitant]
     Route: 048
  16. SIMVASTATIN [Concomitant]
  17. SIMVASTATIN [Concomitant]
  18. GABAPENTIN [Concomitant]
  19. GABAPENTIN [Concomitant]
  20. VICODIN [Concomitant]
  21. VICODIN [Concomitant]
  22. SLO-MAG [Concomitant]
  23. SLO-MAG [Concomitant]
  24. HYDROXYZINE [Concomitant]
  25. HYDROXYZINE [Concomitant]
  26. VITAMIN B COMPLEX CAP [Concomitant]
  27. VITAMIN B COMPLEX CAP [Concomitant]
  28. ACETYLSALICYLIC ACID [Concomitant]
  29. ACETYLSALICYLIC ACID [Concomitant]
  30. WARFARIN SODIUM [Concomitant]
  31. WARFARIN SODIUM [Concomitant]
  32. MOMETASONE FUROATE [Concomitant]
  33. MOMETASONE FUROATE [Concomitant]
  34. ALBUTEROL [Concomitant]
     Route: 055
  35. ATROVENT [Concomitant]
     Route: 055
  36. FOSINOPRIL SODIUM [Concomitant]
  37. HYDROCODONE [Concomitant]

REACTIONS (14)
  - ATRIOVENTRICULAR BLOCK FIRST DEGREE [None]
  - BLOOD PRESSURE INCREASED [None]
  - BUNDLE BRANCH BLOCK RIGHT [None]
  - COGNITIVE DISORDER [None]
  - COLD SWEAT [None]
  - CONDUCTION DISORDER [None]
  - CONSTIPATION [None]
  - DISTURBANCE IN ATTENTION [None]
  - ELECTROCARDIOGRAM Q WAVE ABNORMAL [None]
  - IMPAIRED DRIVING ABILITY [None]
  - MEMORY IMPAIRMENT [None]
  - NEUROPATHY PERIPHERAL [None]
  - OEDEMA [None]
  - PAIN IN EXTREMITY [None]
